FAERS Safety Report 5568697-0 (Version None)
Quarter: 2007Q4

REPORT INFORMATION
  Report Type: 
  Country: None (occurrence: None)
  Receive Date: 20071220
  Receipt Date: 20061101
  Transmission Date: 20080405
  Serious: No
  Sender: FDA-Public Use
  Company Number: A0625839A

PATIENT
  Age: 54 Year
  Sex: Male

DRUGS (3)
  1. AVODART [Suspect]
     Indication: BENIGN PROSTATIC HYPERPLASIA
     Dosage: .5MG PER DAY
     Route: 048
     Dates: start: 20050401
  2. NEXIUM [Concomitant]
  3. ATENOL [Concomitant]

REACTIONS (3)
  - BREAST MASS [None]
  - BREAST SWELLING [None]
  - BREAST TENDERNESS [None]
